FAERS Safety Report 4917480-5 (Version None)
Quarter: 2006Q1

REPORT INFORMATION
  Report Type: 
  Country: None (occurrence: None)
  Receive Date: 20060221
  Receipt Date: 20060207
  Transmission Date: 20060701
  Serious: Yes (Hospitalization)
  Sender: FDA-Public Use
  Company Number: DK-JNJFOC-20051201295

PATIENT
  Sex: Female
  Weight: 64 kg

DRUGS (4)
  1. CAELYX [Suspect]
     Indication: OVARIAN CANCER
     Dosage: X 2 CYCLES
     Route: 042
  2. GEMZAR [Suspect]
     Indication: OVARIAN CANCER
     Route: 042
  3. DIGOXIN [Concomitant]
     Route: 048
  4. DIGOXIN [Concomitant]
     Route: 048

REACTIONS (1)
  - ATRIAL FIBRILLATION [None]
